FAERS Safety Report 9068388 (Version 1)
Quarter: 2013Q1

REPORT INFORMATION
  Report Type: Spontaneous
  Country: JP (occurrence: JP)
  Receive Date: 20130206
  Receipt Date: 20130206
  Transmission Date: 20140127
  Serious: Yes (Other)
  Sender: FDA-Public Use
  Company Number: JP-PFIZER INC-2013039451

PATIENT
  Age: 65 Year
  Sex: Female

DRUGS (4)
  1. LEVOLEUCOVORIN CALCIUM [Suspect]
     Indication: RECTAL CANCER
     Dosage: 280 MG, UNK
     Route: 042
  2. OXALIPLATIN [Suspect]
     Indication: RECTAL CANCER
     Dosage: 115 MG, UNK
     Route: 042
  3. FLUOROURACIL [Suspect]
     Indication: RECTAL CANCER
     Dosage: 560 MG, UNK
     Route: 040
  4. FLUOROURACIL [Suspect]
     Dosage: 3360 MG, UNK
     Route: 041

REACTIONS (10)
  - Inappropriate antidiuretic hormone secretion [Recovering/Resolving]
  - Respiratory arrest [Recovering/Resolving]
  - Depressed level of consciousness [Recovering/Resolving]
  - Bradycardia [Unknown]
  - Dyslalia [Recovering/Resolving]
  - Hyponatraemia [Recovering/Resolving]
  - Nausea [Recovering/Resolving]
  - Vomiting [Unknown]
  - Hypoaesthesia [Unknown]
  - Malaise [Recovering/Resolving]
